FAERS Safety Report 8231327-3 (Version None)
Quarter: 2012Q1

REPORT INFORMATION
  Report Type: 
  Country: None (occurrence: None)
  Receive Date: 20120323
  Receipt Date: 20120319
  Transmission Date: 20120608
  Serious: Yes (Other)
  Sender: FDA-Public Use
  Company Number: CA-ABBOTT-12P-028-0916953-00

PATIENT
  Weight: 79.8 kg

DRUGS (1)
  1. KALETRA [Suspect]
     Indication: HIV INFECTION
     Dosage: UNKNOWN
     Route: 048
     Dates: start: 20100101, end: 20100101

REACTIONS (1)
  - ABORTION SPONTANEOUS [None]
